FAERS Safety Report 12487688 (Version 1)
Quarter: 2016Q2

REPORT INFORMATION
  Report Type: Other
  Country: US (occurrence: US)
  Receive Date: 20160622
  Receipt Date: 20160622
  Transmission Date: 20160815
  Serious: Yes (Other)
  Sender: FDA-Public Use
  Company Number: US-SHIRE-US201605912

PATIENT
  Age: 5 Year
  Sex: Female
  Weight: 98 kg

DRUGS (11)
  1. ZYRTEC [Suspect]
     Active Substance: CETIRIZINE HYDROCHLORIDE
     Indication: PRODUCT USED FOR UNKNOWN INDICATION
     Dosage: 10 ML, 1X/DAY:QD
     Route: 048
  2. CINRYZE [Suspect]
     Active Substance: HUMAN C1-ESTERASE INHIBITOR
     Indication: PROPHYLAXIS
     Dosage: 1000 UNITS, OTHER (TWICE A WEEK)
     Route: 042
     Dates: start: 2011, end: 20140714
  3. AMICAR [Concomitant]
     Active Substance: AMINOCAPROIC ACID
     Indication: HEREDITARY ANGIOEDEMA
     Dosage: UNK, UNKNOWN
     Route: 065
  4. HEPARIN LOCK FLUSH [Concomitant]
     Active Substance: HEPARIN SODIUM
     Indication: CATHETER MANAGEMENT
     Dosage: UNK, UNKNOWN
     Route: 065
  5. ACETAMINOPHEN. [Concomitant]
     Active Substance: ACETAMINOPHEN
     Indication: PYREXIA
     Dosage: 325 MG, AS REQ^D (EVERY 4 HOURS AS NEEDED)
     Route: 048
  6. IBUPROFEN. [Concomitant]
     Active Substance: IBUPROFEN
     Indication: PYREXIA
     Dosage: 200 MG, AS REQ^D (EVERY 6 HOURS AS NEEDED)
     Route: 048
  7. IBUPROFEN. [Concomitant]
     Active Substance: IBUPROFEN
     Indication: PAIN
  8. LIDOCAINE 5% EXTRA [Concomitant]
     Indication: PRODUCT USED FOR UNKNOWN INDICATION
     Dosage: UNK, UNKNOWN
     Route: 061
  9. CINRYZE [Suspect]
     Active Substance: HUMAN C1-ESTERASE INHIBITOR
     Indication: HEREDITARY ANGIOEDEMA
     Dosage: 1000 UNITS, OTHER (EVERY 7 DAYS)
     Route: 042
     Dates: start: 20101019, end: 2011
  10. CINRYZE [Suspect]
     Active Substance: HUMAN C1-ESTERASE INHIBITOR
     Dosage: 1000 UNITS, OTHER (THREE TIMES A WEEK)
     Route: 042
     Dates: start: 20140715
  11. STERILE WATER [Concomitant]
     Active Substance: WATER
     Indication: MEDICATION DILUTION
     Dosage: 5 ML, UNKNOWN
     Route: 042

REACTIONS (6)
  - Sleep apnoea syndrome [Unknown]
  - Drug administered to patient of inappropriate age [Not Recovered/Not Resolved]
  - Respiratory tract oedema [Recovered/Resolved]
  - Drug dose omission [Unknown]
  - Hereditary angioedema [Recovered/Resolved]
  - Inappropriate schedule of drug administration [Not Recovered/Not Resolved]

NARRATIVE: CASE EVENT DATE: 20101019
